FAERS Safety Report 16706268 (Version 1)
Quarter: 2019Q3

REPORT INFORMATION
  Report Type: Spontaneous
  Country: US (occurrence: US)
  Receive Date: 20190815
  Receipt Date: 20190815
  Transmission Date: 20191004
  Serious: No
  Sender: FDA-Public Use
  Company Number: US-PFIZER INC-2019348867

PATIENT
  Age: 76 Year
  Sex: Female
  Weight: 92.8 kg

DRUGS (3)
  1. LYRICA [Suspect]
     Active Substance: PREGABALIN
     Indication: PLASMA CELL MYELOMA
  2. LYRICA [Suspect]
     Active Substance: PREGABALIN
     Indication: NEUROPATHY PERIPHERAL
     Dosage: 50 MG, 3X/DAY (TAKES 1 IN AM AND 2 AT NIGHT)
     Route: 048
  3. LYRICA [Suspect]
     Active Substance: PREGABALIN
     Indication: SLEEP DISORDER

REACTIONS (3)
  - Dyskinesia [Unknown]
  - Drug ineffective for unapproved indication [Unknown]
  - Off label use [Unknown]
